FAERS Safety Report 23740478 (Version 1)
Quarter: 2024Q2

REPORT INFORMATION
  Report Type: Spontaneous
  Country: US (occurrence: US)
  Receive Date: 20240415
  Receipt Date: 20240415
  Transmission Date: 20240716
  Serious: No
  Sender: FDA-Public Use
  Company Number: US-BRISTOL-MYERS SQUIBB COMPANY-2024-058075

PATIENT
  Age: 71 Year
  Sex: Male
  Weight: 62.6 kg

DRUGS (1)
  1. ELIQUIS [Suspect]
     Active Substance: APIXABAN
     Indication: Deep vein thrombosis
     Dosage: DOSE : UNAVAILABLE;     FREQ : TWICE A DAY
     Route: 048
     Dates: start: 202403

REACTIONS (1)
  - Intervertebral disc protrusion [Unknown]
